FAERS Safety Report 8808953 (Version 1)
Quarter: 2012Q4

REPORT INFORMATION
  Report Type: 
  Country: US (occurrence: US)
  Receive Date: 20120926
  Receipt Date: 20120926
  Transmission Date: 20130627
  Serious: Yes (Other)
  Sender: FDA-Public Use
  Company Number: US-ASTELLAS-2012US007957

PATIENT
  Age: 53 Year
  Sex: Male

DRUGS (2)
  1. PROGRAF [Suspect]
     Indication: TRANSPLANT
     Dosage: 3 mg, bid
     Route: 065
     Dates: start: 20070608
  2. ZETIA [Concomitant]
     Indication: BLOOD CHOLESTEROL INCREASED
     Dosage: 10 mg, UID/QD
     Route: 065
     Dates: start: 20070608

REACTIONS (1)
  - Muscular weakness [Not Recovered/Not Resolved]
